FAERS Safety Report 8202587-X (Version None)
Quarter: 2012Q1

REPORT INFORMATION
  Report Type: 
  Country: None (occurrence: None)
  Receive Date: 20120312
  Receipt Date: 20120306
  Transmission Date: 20120608
  Serious: No
  Sender: FDA-Public Use
  Company Number: IT-JNJFOC-20120304511

PATIENT
  Age: 27 Year
  Sex: Female

DRUGS (1)
  1. INFLIXIMAB, RECOMBINANT [Suspect]
     Indication: POUCHITIS
     Dosage: 0-2-6 WEEKS AND EVERY 8 WEEKS FOR AN AVERAGE 18 MONTHS (RANGE 12-30)
     Route: 042

REACTIONS (1)
  - GENITAL HERPES [None]
